FAERS Safety Report 9056808 (Version 1)
Quarter: 2013Q1

REPORT INFORMATION
  Report Type: Spontaneous
  Country: CA (occurrence: CA)
  Receive Date: 20130201
  Receipt Date: 20130201
  Transmission Date: 20140127
  Serious: Yes (Other)
  Sender: FDA-Public Use
  Company Number: CA-ABBOTT-13P-028-1042877-00

PATIENT
  Age: 46 Year
  Sex: Male

DRUGS (10)
  1. KALETRA [Suspect]
     Indication: PRODUCT USED FOR UNKNOWN INDICATION
  2. VALPROIC ACID [Suspect]
     Indication: PRODUCT USED FOR UNKNOWN INDICATION
  3. VALPROIC ACID [Suspect]
  4. VALPROIC ACID [Suspect]
  5. CLOBAZAM [Suspect]
     Indication: PRODUCT USED FOR UNKNOWN INDICATION
  6. CLOBAZAM [Suspect]
  7. CLOBAZAM [Suspect]
  8. INTELENCE [Suspect]
     Indication: PRODUCT USED FOR UNKNOWN INDICATION
  9. ISENTRESS [Suspect]
     Indication: PRODUCT USED FOR UNKNOWN INDICATION
  10. TRUVADA [Suspect]
     Indication: PRODUCT USED FOR UNKNOWN INDICATION

REACTIONS (7)
  - Dysarthria [Recovered/Resolved]
  - Asthenia [Recovered/Resolved]
  - Drug interaction [Recovered/Resolved]
  - Drug level increased [Recovered/Resolved]
  - Gait disturbance [Recovered/Resolved]
  - Neurotoxicity [Recovered/Resolved]
  - Somnolence [Recovered/Resolved]
